FAERS Safety Report 16648789 (Version 1)
Quarter: 2019Q3

REPORT INFORMATION
  Report Type: Report from Study
  Country: AU (occurrence: UG)
  Receive Date: 20190730
  Receipt Date: 20190730
  Transmission Date: 20191004
  Serious: Yes (Death)
  Sender: FDA-Public Use
  Company Number: AU-CASPER PHARMA LLC-2019CAS000368

PATIENT
  Age: 17 Year
  Sex: Male

DRUGS (1)
  1. PENICILLIN G BENZATHINE [Suspect]
     Active Substance: PENICILLIN G BENZATHINE
     Indication: VASCULAR DISORDER PROPHYLAXIS
     Dosage: UNK
     Route: 030

REACTIONS (2)
  - Dizziness [Fatal]
  - Hypotension [Fatal]
